FAERS Safety Report 20962926 (Version 3)
Quarter: 2022Q3

REPORT INFORMATION
  Report Type: Spontaneous
  Country: FR (occurrence: FR)
  Receive Date: 20220615
  Receipt Date: 20220927
  Transmission Date: 20221027
  Serious: Yes (Other)
  Sender: FDA-Public Use
  Company Number: FR-BRISTOL-MYERS SQUIBB COMPANY-2022-053584

PATIENT
  Age: 59 Year
  Sex: Female
  Weight: 51 kg

DRUGS (3)
  1. ONUREG [Suspect]
     Active Substance: AZACITIDINE
     Indication: Acute myeloid leukaemia
     Dosage: 14 DAYS (28 DAYS TREATMENT CYCLE)
     Route: 065
     Dates: start: 20220204
  2. ONUREG [Suspect]
     Active Substance: AZACITIDINE
     Dosage: 14 DAYS (28 DAYS TREATMENT CYCLE)
     Route: 065
     Dates: start: 20220311
  3. ONUREG [Suspect]
     Active Substance: AZACITIDINE
     Dosage: 14 DAYS (28 DAYS TREATMENT CYCLE)
     Route: 065
     Dates: start: 20220408

REACTIONS (1)
  - Haemoglobin abnormal [Not Recovered/Not Resolved]

NARRATIVE: CASE EVENT DATE: 20220404
